FAERS Safety Report 7051369-3 (Version None)
Quarter: 2010Q4

REPORT INFORMATION
  Report Type: 
  Country: None (occurrence: None)
  Receive Date: 20101019
  Receipt Date: 20101012
  Transmission Date: 20110411
  Serious: Yes (Disabling)
  Sender: FDA-Public Use
  Company Number: NO-SANOFI-AVENTIS-2010SA041199

PATIENT
  Sex: Male

DRUGS (3)
  1. TAXOTERE [Suspect]
     Indication: PROSTATE CANCER
     Route: 042
     Dates: start: 20100114, end: 20100325
  2. ZOLADEX [Concomitant]
     Indication: PROSTATE CANCER
  3. THERAPEUTIC RADIOPHARMACEUTICALS [Concomitant]
     Indication: PROSTATE CANCER

REACTIONS (9)
  - FATIGUE [None]
  - FLUID RETENTION [None]
  - MYALGIA [None]
  - OEDEMA [None]
  - OEDEMA PERIPHERAL [None]
  - PAIN [None]
  - PARESIS [None]
  - TREMOR [None]
  - VISUAL IMPAIRMENT [None]
